FAERS Safety Report 11440549 (Version 2)
Quarter: 2015Q3

REPORT INFORMATION
  Report Type: Report from Study
  Country: US (occurrence: US)
  Receive Date: 20150901
  Receipt Date: 20150908
  Transmission Date: 20151125
  Serious: Yes (Hospitalization)
  Sender: FDA-Public Use
  Company Number: PHEH2015US016996

PATIENT
  Age: 45 Year
  Sex: Female
  Weight: 124.72 kg

DRUGS (1)
  1. GILENYA [Suspect]
     Active Substance: FINGOLIMOD HYDROCHLORIDE
     Indication: MULTIPLE SCLEROSIS
     Dosage: 0.5 MG, QD
     Route: 048
     Dates: start: 20150728

REACTIONS (5)
  - Vision blurred [Not Recovered/Not Resolved]
  - Sepsis [Unknown]
  - Visual acuity reduced [Unknown]
  - Malaise [Unknown]
  - Thrombosis [Unknown]

NARRATIVE: CASE EVENT DATE: 20150809
